FAERS Safety Report 6302854-0 (Version None)
Quarter: 2009Q3

REPORT INFORMATION
  Report Type: 
  Country: None (occurrence: None)
  Receive Date: 20090810
  Receipt Date: 20090728
  Transmission Date: 20100115
  Serious: Yes (Other)
  Sender: FDA-Public Use
  Company Number: GB-ELI_LILLY_AND_COMPANY-GB200903003752

PATIENT
  Sex: Male
  Weight: 27 kg

DRUGS (2)
  1. STRATTERA [Suspect]
     Dosage: 25 MG, UNKNOWN
     Route: 065
  2. METHYLPHENIDATE HCL [Concomitant]
     Indication: ATTENTION DEFICIT/HYPERACTIVITY DISORDER
     Dosage: SMALL DOSE
     Route: 048

REACTIONS (3)
  - CARDIOVASCULAR DISORDER [None]
  - PALPITATIONS [None]
  - RAYNAUD'S PHENOMENON [None]
